FAERS Safety Report 7142036-6 (Version None)
Quarter: 2010Q4

REPORT INFORMATION
  Report Type: 
  Country: None (occurrence: None)
  Receive Date: 20101207
  Receipt Date: 20101206
  Transmission Date: 20110411
  Serious: Yes (Hospitalization)
  Sender: FDA-Public Use
  Company Number: B0597410A

PATIENT
  Age: 16 Year
  Sex: Female
  Weight: 62 kg

DRUGS (11)
  1. DIGOXIN [Suspect]
     Dosage: .125MG PER DAY
  2. SUCCINYLCHOLINE CHLORIDE [Suspect]
     Dosage: 120MG PER DAY
  3. FUROSEMIDE [Suspect]
     Dosage: 20MG PER DAY
  4. LIDOCAINE [Suspect]
     Dosage: 20MGML PER DAY
  5. EPHEDRINE [Suspect]
     Dosage: 5UGML PER DAY
  6. RINGERS SOLUTION [Suspect]
     Dosage: 500ML PER DAY
  7. OXYGEN [Suspect]
  8. FENTANYL [Suspect]
     Dosage: 100UG PER DAY
  9. PHENYLEPHRINE HCL [Suspect]
     Dosage: 100UG PER DAY
  10. THIOPENTAL SODIUM [Suspect]
     Dosage: 100MG PER DAY
  11. DIURETICS [Suspect]

REACTIONS (11)
  - ANAESTHETIC COMPLICATION [None]
  - CAESAREAN SECTION [None]
  - CARDIAC OUTPUT DECREASED [None]
  - DRUG EXPOSURE DURING PREGNANCY [None]
  - HYPOTENSION [None]
  - HYPOVOLAEMIA [None]
  - INCORRECT ROUTE OF DRUG ADMINISTRATION [None]
  - LIVE BIRTH [None]
  - PREMATURE LABOUR [None]
  - SINUS RHYTHM [None]
  - TACHYCARDIA [None]
